FAERS Safety Report 8596358-2 (Version None)
Quarter: 2012Q3

REPORT INFORMATION
  Report Type: 
  Country: None (occurrence: None)
  Receive Date: 20120815
  Receipt Date: 20120801
  Transmission Date: 20120928
  Serious: Yes (Other)
  Sender: FDA-Public Use
  Company Number: NO-ROCHE-1081675

PATIENT
  Sex: Female

DRUGS (11)
  1. MABTHERA [Suspect]
     Indication: RHEUMATOID ARTHRITIS
     Dates: start: 20100301
  2. PREDNISOLONE [Concomitant]
  3. METHOTREXATE [Suspect]
     Indication: LEUKOCYTOCLASTIC VASCULITIS
  4. CYCLOSPORINE [Suspect]
     Indication: LEUKOPENIA
  5. CYCLOSPORINE [Suspect]
     Indication: LEUKOCYTOCLASTIC VASCULITIS
  6. AZATHIOPRINE SODIUM [Suspect]
     Indication: CRYOGLOBULINAEMIA
  7. MABTHERA [Suspect]
     Indication: CRYOGLOBULINAEMIA
     Dosage: GIVEN AFTER 2 MONTHS FROM THE EVENT
  8. METHOTREXATE [Suspect]
     Indication: OFF LABEL USE
  9. METHOTREXATE [Suspect]
     Indication: CRYOGLOBULINAEMIA
  10. AZATHIOPRINE SODIUM [Suspect]
     Indication: LEUKOCYTOCLASTIC VASCULITIS
  11. CYCLOSPORINE [Suspect]
     Indication: CRYOGLOBULINAEMIA

REACTIONS (1)
  - NEUTROPENIA [None]
